FAERS Safety Report 10354288 (Version 1)
Quarter: 2014Q3

REPORT INFORMATION
  Report Type: Spontaneous
  Country: US (occurrence: US)
  Receive Date: 20140731
  Receipt Date: 20140731
  Transmission Date: 20150326
  Serious: No
  Sender: FDA-Public Use
  Company Number: US-GLAXOSMITHKLINE-A1028055A

PATIENT
  Age: 55 Year
  Sex: Female
  Weight: 100 kg

DRUGS (4)
  1. SUTENT [Suspect]
     Active Substance: SUNITINIB MALATE
     Indication: RENAL CELL CARCINOMA STAGE IV
     Dosage: 25MG PER DAY
     Dates: start: 201301
  2. HUMULIN NOS [Suspect]
     Active Substance: INSULIN HUMAN
     Indication: DIABETES MELLITUS
  3. LANTUS [Suspect]
     Active Substance: INSULIN GLARGINE
     Indication: DIABETES MELLITUS
     Dosage: 27IU PER DAY
  4. DYAZIDE [Suspect]
     Active Substance: HYDROCHLOROTHIAZIDE\TRIAMTERENE
     Indication: HYPERTENSION

REACTIONS (16)
  - Rash [Unknown]
  - Blood glucose increased [Unknown]
  - Diarrhoea [Unknown]
  - Flatulence [Unknown]
  - Nausea [Unknown]
  - Hyperhidrosis [Unknown]
  - Hypertension [Unknown]
  - Decreased appetite [Unknown]
  - Blood glucose decreased [Unknown]
  - Fatigue [Unknown]
  - Pallor [Unknown]
  - Constipation [Unknown]
  - Oropharyngeal pain [Unknown]
  - Ageusia [Unknown]
  - Asthenia [Unknown]
  - Pyrexia [Unknown]

NARRATIVE: CASE EVENT DATE: 201301
